FAERS Safety Report 6286603-0 (Version None)
Quarter: 2009Q3

REPORT INFORMATION
  Report Type: 
  Country: None (occurrence: None)
  Receive Date: 20090728
  Receipt Date: 20090716
  Transmission Date: 20100115
  Serious: Yes (Other)
  Sender: FDA-Public Use
  Company Number: PHEH2007US15453

PATIENT
  Sex: Male

DRUGS (6)
  1. ZOMETA [Suspect]
     Dosage: UNK
  2. ZANTAC [Concomitant]
  3. DARVOCET-N 100 [Concomitant]
  4. LISINOPRIL [Concomitant]
  5. NIFEDIPINE [Concomitant]
  6. NOVOLIN [Concomitant]

REACTIONS (9)
  - ANHEDONIA [None]
  - ANXIETY [None]
  - BONE DISORDER [None]
  - GINGIVAL PAIN [None]
  - INJURY [None]
  - OSTEONECROSIS [None]
  - PAIN [None]
  - SALIVARY GLAND ENLARGEMENT [None]
  - TOOTH EXTRACTION [None]
